FAERS Safety Report 24224285 (Version 1)
Quarter: 2024Q3

REPORT INFORMATION
  Report Type: Spontaneous
  Country: CL (occurrence: CL)
  Receive Date: 20240819
  Receipt Date: 20240819
  Transmission Date: 20241017
  Serious: Yes (Hospitalization)
  Sender: SANDOZ
  Company Number: CL-SANDOZ-SDZ2024CL062912

PATIENT
  Sex: Male
  Weight: 38 kg

DRUGS (2)
  1. TACROLIMUS [Suspect]
     Active Substance: TACROLIMUS
     Dosage: 5 MG, Q12H
     Route: 065
  2. TACROLIMUS [Suspect]
     Active Substance: TACROLIMUS
     Indication: Product used for unknown indication
     Dosage: 10 MG, Q12H
     Route: 065

REACTIONS (1)
  - Drug level decreased [Unknown]
